FAERS Safety Report 16664613 (Version 4)
Quarter: 2019Q4

REPORT INFORMATION
  Report Type: Spontaneous
  Country: PL (occurrence: PL)
  Receive Date: 20190803
  Receipt Date: 20191209
  Transmission Date: 20200122
  Serious: Yes (Death, Life-Threatening, Hospitalization, Other)
  Sender: FDA-Public Use
  Company Number: PL-ABBVIE-19K-129-2860516-00

PATIENT
  Age: 51 Year
  Sex: Female

DRUGS (3)
  1. MILURIT [Concomitant]
     Active Substance: ALLOPURINOL
     Indication: HYPERURICAEMIA
     Dates: start: 20190701
  2. VENCLYXTO [Suspect]
     Active Substance: VENETOCLAX
     Indication: CHRONIC LYMPHOCYTIC LEUKAEMIA
     Route: 048
     Dates: end: 20190705
  3. VENCLYXTO [Suspect]
     Active Substance: VENETOCLAX
     Dosage: SINGLE USE
     Route: 048
     Dates: start: 20190710, end: 20190710

REACTIONS (16)
  - Respiratory failure [Unknown]
  - Immune system disorder [Unknown]
  - Fungal infection [Unknown]
  - Renal failure [Unknown]
  - Tumour lysis syndrome [Unknown]
  - Circulatory collapse [Unknown]
  - Lymphadenopathy [Unknown]
  - Adverse event [Unknown]
  - Hyperkalaemia [Unknown]
  - Dyspnoea [Unknown]
  - Multiple organ dysfunction syndrome [Fatal]
  - Post procedural sepsis [Unknown]
  - Acute kidney injury [Unknown]
  - Hepatomegaly [Unknown]
  - Haemangioma [Unknown]
  - Bacterial infection [Unknown]

NARRATIVE: CASE EVENT DATE: 2019
